FAERS Safety Report 23842208 (Version 3)
Quarter: 2024Q2

REPORT INFORMATION
  Report Type: Spontaneous
  Country: CN (occurrence: CN)
  Receive Date: 20240510
  Receipt Date: 20240617
  Transmission Date: 20240715
  Serious: Yes (Hospitalization)
  Sender: FDA-Public Use
  Company Number: CN-SANOFI-02038322

PATIENT
  Sex: Female

DRUGS (1)
  1. DUPIXENT [Suspect]
     Active Substance: DUPILUMAB
     Indication: Dermatitis atopic
     Dosage: 300 MG, QOW
     Route: 058
     Dates: start: 2024, end: 202404

REACTIONS (5)
  - Pain [Unknown]
  - Pyrexia [Unknown]
  - Pyrexia [Unknown]
  - Decreased appetite [Unknown]
  - Hypogeusia [Unknown]

NARRATIVE: CASE EVENT DATE: 20240101
